FAERS Safety Report 16956765 (Version 14)
Quarter: 2020Q4

REPORT INFORMATION
  Report Type: Report from Study
  Country: US (occurrence: US)
  Receive Date: 20191024
  Receipt Date: 20201030
  Transmission Date: 20210113
  Serious: Yes (Hospitalization, Other)
  Sender: FDA-Public Use
  Company Number: US-BRISTOL-MYERS SQUIBB COMPANY-BMS-2019-100495

PATIENT
  Sex: Female

DRUGS (3)
  1. IPILIMUMAB [Suspect]
     Active Substance: IPILIMUMAB
     Indication: MALIGNANT MELANOMA
     Dosage: UNK
     Route: 065
  2. PREDNISONE. [Concomitant]
     Active Substance: PREDNISONE
     Indication: PRODUCT USED FOR UNKNOWN INDICATION
     Route: 065
  3. NIVOLUMAB [Suspect]
     Active Substance: NIVOLUMAB
     Indication: MALIGNANT MELANOMA
     Dosage: UNK UNK, Q2WK
     Route: 042

REACTIONS (14)
  - Joint effusion [Unknown]
  - Gait disturbance [Unknown]
  - Prescribed underdose [Unknown]
  - Arthralgia [Not Recovered/Not Resolved]
  - Fatigue [Unknown]
  - Cataract [Unknown]
  - Peripheral swelling [Recovering/Resolving]
  - Rash [Unknown]
  - Muscular weakness [Unknown]
  - Dry skin [Unknown]
  - Lung disorder [Unknown]
  - Diarrhoea [Unknown]
  - Pruritus [Unknown]
  - Upper respiratory tract infection [Not Recovered/Not Resolved]
